FAERS Safety Report 24101411 (Version 1)
Quarter: 2024Q3

REPORT INFORMATION
  Report Type: Spontaneous
  Country: US (occurrence: US)
  Receive Date: 20240717
  Receipt Date: 20240717
  Transmission Date: 20241017
  Serious: Yes (Death, Other)
  Sender: BRISTOL MYERS SQUIBB
  Company Number: US-BRISTOL-MYERS SQUIBB COMPANY-2024-112969

PATIENT
  Age: 85 Year
  Sex: Female
  Weight: 30.39 kg

DRUGS (1)
  1. POMALYST [Suspect]
     Active Substance: POMALIDOMIDE
     Indication: Product used for unknown indication
     Dosage: 3WEEKS ON 1 WEEK OFF
     Route: 048
     Dates: end: 20240709

REACTIONS (1)
  - Death [Fatal]

NARRATIVE: CASE EVENT DATE: 20240709
